FAERS Safety Report 21943908 (Version 1)
Quarter: 2023Q1

REPORT INFORMATION
  Report Type: Spontaneous
  Country: US (occurrence: US)
  Receive Date: 20230202
  Receipt Date: 20230202
  Transmission Date: 20230417
  Serious: No
  Sender: FDA-Public Use
  Company Number: US-GSKCCFUS-Case-01608579_AE-90888

PATIENT
  Sex: Female

DRUGS (2)
  1. NUCALA [Suspect]
     Active Substance: MEPOLIZUMAB
     Indication: Product used for unknown indication
     Dosage: 100 MG, Z,5 MONTH
  2. NUCALA [Suspect]
     Active Substance: MEPOLIZUMAB
     Dosage: 300 MG, Z,EVERY 28 DAYS

REACTIONS (5)
  - Sneezing [Unknown]
  - Cough [Unknown]
  - Drainage [Unknown]
  - Nasal congestion [Unknown]
  - Condition aggravated [Unknown]
